FAERS Safety Report 14137121 (Version 2)
Quarter: 2017Q4

REPORT INFORMATION
  Report Type: Spontaneous
  Country: EG (occurrence: EG)
  Receive Date: 20171027
  Receipt Date: 20171101
  Transmission Date: 20180321
  Serious: Yes (Death, Other)
  Sender: FDA-Public Use
  Company Number: EG-JNJFOC-20171031237

PATIENT

DRUGS (2)
  1. SOFOSBUVIR [Suspect]
     Active Substance: SOFOSBUVIR
     Indication: CHRONIC HEPATITIS C
     Dosage: FOR 12 WEEKS DURATION
     Route: 065
  2. SIMEPREVIR [Suspect]
     Active Substance: SIMEPREVIR
     Indication: CHRONIC HEPATITIS C
     Dosage: FOR 12 WEEKS DURATION
     Route: 065

REACTIONS (11)
  - Pruritus [Unknown]
  - Remission not achieved [Unknown]
  - Anaemia [Unknown]
  - Headache [Unknown]
  - Gastrointestinal haemorrhage [Unknown]
  - Thrombocytopenia [Unknown]
  - Hyperbilirubinaemia [Unknown]
  - Fatigue [Unknown]
  - Rash [Unknown]
  - Photosensitivity reaction [Unknown]
  - Hepatic failure [Fatal]
